FAERS Safety Report 7153887-6 (Version None)
Quarter: 2010Q4

REPORT INFORMATION
  Report Type: 
  Country: None (occurrence: None)
  Receive Date: 20101213
  Receipt Date: 20101102
  Transmission Date: 20110411
  Serious: No
  Sender: FDA-Public Use
  Company Number: US-ABBOTT-10P-163-0680306-00

PATIENT
  Sex: Female
  Weight: 64.468 kg

DRUGS (6)
  1. MERIDIA [Suspect]
     Indication: WEIGHT DECREASED
     Dates: start: 20100101, end: 20101022
  2. MERIDIA [Suspect]
     Indication: OBESITY
  3. HYDROCHLOROTHIAZIDE [Concomitant]
     Indication: HYPERTENSION
  4. OMACOR [Concomitant]
     Indication: BLOOD CHOLESTEROL INCREASED
  5. VITAMINS [Concomitant]
     Indication: VITAMIN SUPPLEMENTATION
  6. ASPIRIN [Concomitant]
     Indication: CARDIAC DISORDER

REACTIONS (3)
  - DIZZINESS [None]
  - DYSPNOEA [None]
  - FATIGUE [None]
